FAERS Safety Report 4697501-8 (Version None)
Quarter: 2005Q2

REPORT INFORMATION
  Report Type: 
  Country: None (occurrence: None)
  Receive Date: 20050622
  Receipt Date: 20050616
  Transmission Date: 20051028
  Serious: Yes (Life-Threatening, Hospitalization, Disabling)
  Sender: FDA-Public Use
  Company Number: US-MERCK-0506USA02678

PATIENT
  Age: 95 Year
  Sex: Female

DRUGS (3)
  1. FOSAMAX [Suspect]
     Indication: OSTEOPOROSIS
     Route: 048
     Dates: start: 20050210
  2. DIOVAN [Concomitant]
     Route: 065
  3. MIRALAX [Concomitant]
     Route: 065

REACTIONS (1)
  - EPISTAXIS [None]
